FAERS Safety Report 7846798 (Version 2)
Quarter: 2012Q4

REPORT INFORMATION
  Report Type: 
  Country: US (occurrence: US)
  Receive Date: 20110308
  Receipt Date: 20120927
  Transmission Date: 20130627
  Serious: No
  Sender: FDA-Public Use
  Company Number: US-AMGEN-USASP2010011067

PATIENT
  Age: 83 Year
  Sex: Female

DRUGS (16)
  1. PROLIA [Suspect]
     Indication: OSTEOPOROSIS POSTMENOPAUSAL
     Dates: start: 20101027
  2. PREDNISONE [Concomitant]
  3. SIMVASTATIN [Concomitant]
  4. TOLECTIN [Concomitant]
  5. LASIX                              /00032601/ [Concomitant]
  6. NEURONTIN [Concomitant]
  7. METHOTREXATE [Concomitant]
  8. LEUCOVORIN /00566701/ [Concomitant]
  9. PEPCID                             /00706001/ [Concomitant]
  10. QUINAPRIL [Concomitant]
  11. DILTIAZEM [Concomitant]
  12. CALCIUM [Concomitant]
  13. CLONIDINE [Concomitant]
  14. VITAMIN D [Concomitant]
     Dosage: UNK
  15. GABAPENTIN [Concomitant]
     Dosage: UNK
  16. CARTIA XT [Concomitant]
     Dosage: UNK

REACTIONS (1)
  - Rash vesicular [Recovered/Resolved]
